FAERS Safety Report 7844237-8 (Version None)
Quarter: 2011Q4

REPORT INFORMATION
  Report Type: 
  Country: None (occurrence: None)
  Receive Date: 20111025
  Receipt Date: 20111012
  Transmission Date: 20120403
  Serious: Yes (Hospitalization, Other)
  Sender: FDA-Public Use
  Company Number: US-BAYER-2011-095713

PATIENT
  Age: 73 Year
  Sex: Male
  Weight: 90 kg

DRUGS (17)
  1. SINEMET [Concomitant]
     Dosage: 20-250 MG/ DAILY
     Route: 048
  2. LANSOPRAZOLE [Concomitant]
     Dosage: DAILY DOSE 30 MG
     Route: 048
  3. CLOPIDOGREL [Suspect]
     Dosage: 75 MG, QD
     Route: 048
  4. DOCETAXEL [Suspect]
     Dosage: EVERY 21 DAYS
     Route: 042
     Dates: start: 20110525, end: 20110817
  5. ACETAMINOPHEN [Concomitant]
     Dosage: 2 DF, PRN
     Route: 048
  6. AMLODIPINE [Concomitant]
     Dosage: 5 MG, QD
     Route: 048
  7. LISINOPRIL [Concomitant]
     Dosage: 5 MG, QD
     Route: 048
  8. ACETYLSALICYLIC ACID SRT [Suspect]
     Dosage: 325 MG, QD
     Route: 048
  9. OGX-11 [Suspect]
     Indication: PROSTATE CANCER
     Dosage: 640 MG, OW
     Route: 042
     Dates: start: 20110518, end: 20110907
  10. DEXAMETHASONE [Concomitant]
     Dosage: 8 MG, BID
     Dates: start: 20110524, end: 20110526
  11. PREDNISONE [Concomitant]
     Dosage: 1 DF, BID
     Dates: start: 20110525
  12. SIMVASTATIN [Concomitant]
     Dosage: 40 MG, QD
     Route: 048
  13. POLYCARBOPHIL CALCIUM [Concomitant]
     Dosage: 1 DF, BID
     Route: 048
  14. MULTI-VITAMIN [Concomitant]
     Dosage: 1 DF, QD
     Route: 048
  15. HYDROCHLOROTHIAZIDE [Concomitant]
     Dosage: 25 MG, QD
     Route: 048
  16. IBUPROFEN [Concomitant]
     Dosage: 200 MG, PRN
     Route: 048
  17. LEUPROLIDE ACETATE [Concomitant]
     Dosage: Q 3 OR 4 MONTHS
     Route: 030

REACTIONS (13)
  - TACHYPNOEA [None]
  - VISUAL FIELD DEFECT [None]
  - HEMIPARESIS [None]
  - SUBDURAL HAEMATOMA [None]
  - THROMBOCYTOPENIA [None]
  - LETHARGY [None]
  - WHEEZING [None]
  - URINARY TRACT INFECTION [None]
  - MENTAL STATUS CHANGES [None]
  - RESPIRATORY ALKALOSIS [None]
  - HYPERNATRAEMIA [None]
  - PULMONARY OEDEMA [None]
  - ANAEMIA [None]
